FAERS Safety Report 13652824 (Version 1)
Quarter: 2017Q2

REPORT INFORMATION
  Report Type: Spontaneous
  Country: US (occurrence: US)
  Receive Date: 20170614
  Receipt Date: 20170614
  Transmission Date: 20170830
  Serious: No
  Sender: FDA-Public Use
  Company Number: US-ROCHE-1205264

PATIENT
  Age: 65 Year
  Sex: Male
  Weight: 62.2 kg

DRUGS (8)
  1. XELODA [Suspect]
     Active Substance: CAPECITABINE
     Indication: COLON CANCER
     Route: 048
     Dates: start: 20120921
  2. METFORMIN [Concomitant]
     Active Substance: METFORMIN HYDROCHLORIDE
     Route: 065
  3. LISINOPRIL. [Concomitant]
     Active Substance: LISINOPRIL
  4. GLIPIZIDE. [Concomitant]
     Active Substance: GLIPIZIDE
  5. AVASTIN [Concomitant]
     Active Substance: BEVACIZUMAB
     Indication: COLON CANCER
     Route: 042
     Dates: start: 20120921
  6. LUMIGAN [Concomitant]
     Active Substance: BIMATOPROST
  7. XELODA [Suspect]
     Active Substance: CAPECITABINE
     Indication: METASTASES TO LUNG
     Route: 048
     Dates: start: 20121130
  8. XELODA [Suspect]
     Active Substance: CAPECITABINE
     Route: 048
     Dates: start: 20130703

REACTIONS (4)
  - Rhinorrhoea [Not Recovered/Not Resolved]
  - Epistaxis [Unknown]
  - Haemorrhage [Unknown]
  - Skin fissures [Unknown]

NARRATIVE: CASE EVENT DATE: 20130329
